FAERS Safety Report 7284442-5 (Version None)
Quarter: 2011Q1

REPORT INFORMATION
  Report Type: 
  Country: None (occurrence: None)
  Receive Date: 20110209
  Receipt Date: 20110121
  Transmission Date: 20110831
  Serious: Yes (Hospitalization)
  Sender: FDA-Public Use
  Company Number: PHHY2010FR78607

PATIENT
  Sex: Female
  Weight: 71 kg

DRUGS (8)
  1. EXELON [Suspect]
     Indication: DEMENTIA ALZHEIMER'S TYPE
     Dosage: 9.5 MG/ 24 HRS
     Route: 062
     Dates: start: 20100422
  2. BETA ADRENERGIC BLOCKING DRUGS [Suspect]
  3. IKOREL [Concomitant]
  4. DIAMICRON [Concomitant]
     Dosage: 60 MG, QD
  5. ATACAND [Concomitant]
  6. GLICLAZIDE [Concomitant]
  7. HEMIGOXINE [Suspect]
  8. PREVISCAN [Concomitant]

REACTIONS (11)
  - ATRIAL FIBRILLATION [None]
  - HEART RATE DECREASED [None]
  - BLOOD PRESSURE INCREASED [None]
  - DIABETES MELLITUS INADEQUATE CONTROL [None]
  - CARDIOMYOPATHY [None]
  - CHEST PAIN [None]
  - BUNDLE BRANCH BLOCK RIGHT [None]
  - LUNG INFILTRATION [None]
  - CARDIAC VALVE SCLEROSIS [None]
  - BRADYCARDIA [None]
  - CARDIOMEGALY [None]
